FAERS Safety Report 12316867 (Version 2)
Quarter: 2017Q2

REPORT INFORMATION
  Report Type: Spontaneous
  Country: ES (occurrence: ES)
  Receive Date: 20160429
  Receipt Date: 20170628
  Transmission Date: 20170830
  Serious: Yes (Other)
  Sender: FDA-Public Use
  Company Number: ES-SUN PHARMACEUTICAL INDUSTRIES LTD-2016R1-115308

PATIENT
  Age: 11 Year
  Sex: Male

DRUGS (2)
  1. AMOXICILLIN. [Suspect]
     Active Substance: AMOXICILLIN
     Dosage: UNK
     Route: 065
  2. AMOXICILLIN. [Suspect]
     Active Substance: AMOXICILLIN
     Indication: PHARYNGITIS
     Dosage: 50 MG/KG, DAILY
     Route: 065

REACTIONS (4)
  - Binocular eye movement disorder [Recovered/Resolved]
  - Vision blurred [Recovered/Resolved]
  - Ataxia [Recovered/Resolved]
  - Diplopia [Recovered/Resolved]
